FAERS Safety Report 10752027 (Version 2)
Quarter: 2015Q1

REPORT INFORMATION
  Report Type: Spontaneous
  Country: JP (occurrence: JP)
  Receive Date: 20150130
  Receipt Date: 20150209
  Transmission Date: 20150721
  Serious: No
  Sender: FDA-Public Use
  Company Number: JP-PFIZER INC-2015035078

PATIENT
  Age: 72 Year
  Sex: Male

DRUGS (3)
  1. MYSLEE [Suspect]
     Active Substance: ZOLPIDEM TARTRATE
     Route: 048
  2. HALCION [Suspect]
     Active Substance: TRIAZOLAM
     Route: 048
  3. AVOLVE [Suspect]
     Active Substance: DUTASTERIDE
     Route: 048

REACTIONS (1)
  - Hepatic function abnormal [Unknown]

NARRATIVE: CASE EVENT DATE: 20150113
